FAERS Safety Report 20054331 (Version 2)
Quarter: 2022Q1

REPORT INFORMATION
  Report Type: Report from Study
  Country: IT (occurrence: IT)
  Receive Date: 20211110
  Receipt Date: 20220110
  Transmission Date: 20220423
  Serious: Yes (Other)
  Sender: FDA-Public Use
  Company Number: IT-PFIZER INC-202101490276

PATIENT

DRUGS (4)
  1. CARBOPLATIN [Suspect]
     Active Substance: CARBOPLATIN
     Indication: Non-small cell lung cancer
     Dosage: AT DAY 1, EVERY 3 WEEKS FOR A MAXIMUM OF 6 CYCLES
     Route: 042
  2. GEMCITABINE HYDROCHLORIDE [Suspect]
     Active Substance: GEMCITABINE HYDROCHLORIDE
     Indication: Non-small cell lung cancer
     Dosage: 3-HOUR INFUSION, AT DAYS 1 AND 8, EVERY 3 WEEKS FOR A MAXIMUM OF 6 CYCLES
     Route: 042
  3. PACLITAXEL [Suspect]
     Active Substance: PACLITAXEL
     Indication: Non-small cell lung cancer
     Dosage: 3-HOUR INFUSION, AT DAY 1, EVERY 3 WEEKS FOR A MAXIMUM OF 6 CYCLES
     Route: 042
  4. AMIFOSTINE [Suspect]
     Active Substance: AMIFOSTINE
     Indication: Non-small cell lung cancer
     Dosage: AT DAY 1 OF EACH CYCLE
     Route: 042

REACTIONS (1)
  - Atrial fibrillation [Unknown]
